FAERS Safety Report 18095145 (Version 1)
Quarter: 2020Q3

REPORT INFORMATION
  Report Type: Report from Study
  Country: GB (occurrence: GB)
  Receive Date: 20200730
  Receipt Date: 20200730
  Transmission Date: 20201103
  Serious: Yes (Hospitalization)
  Sender: FDA-Public Use
  Company Number: GB-JNJFOC-20200734012

PATIENT
  Sex: Female
  Weight: 74.4 kg

DRUGS (52)
  1. MACROGOL [Concomitant]
     Active Substance: POLYETHYLENE GLYCOLS
     Dates: start: 20180116
  2. DOCUSATE SODIUM. [Concomitant]
     Active Substance: DOCUSATE SODIUM
     Dates: start: 20180417
  3. TICAGRELOR. [Concomitant]
     Active Substance: TICAGRELOR
     Dates: start: 20180601, end: 20180921
  4. BENDROFLUMETHIAZIDE [Concomitant]
     Active Substance: BENDROFLUMETHIAZIDE
     Dates: start: 20180724, end: 20181123
  5. LORAZEPAM. [Concomitant]
     Active Substance: LORAZEPAM
     Dates: start: 20190919
  6. AMITRIPTYLINE [Concomitant]
     Active Substance: AMITRIPTYLINE
     Dates: start: 20171128
  7. FOLIC ACID. [Concomitant]
     Active Substance: FOLIC ACID
     Dates: start: 20180417
  8. PENICILLINE                        /00000901/ [Concomitant]
     Active Substance: PENICILLIN G
     Dates: start: 20190929, end: 20191003
  9. TELMISARTAN. [Concomitant]
     Active Substance: TELMISARTAN
     Dates: start: 20030918
  10. LANSOPRAZOLE. [Concomitant]
     Active Substance: LANSOPRAZOLE
     Dates: start: 20120701
  11. ORAMORPH [Concomitant]
     Active Substance: MORPHINE SULFATE
     Dates: start: 20150901
  12. HUMULIN S [Concomitant]
     Dates: start: 20170209
  13. MINOXIDIL. [Concomitant]
     Active Substance: MINOXIDIL
     Dates: start: 20170309
  14. DIAZEPAM. [Concomitant]
     Active Substance: DIAZEPAM
     Dates: start: 20180601, end: 20180601
  15. METHYLPREDNISOLONE. [Concomitant]
     Active Substance: METHYLPREDNISOLONE
     Dates: start: 20180703, end: 20180705
  16. MEROPENEM. [Concomitant]
     Active Substance: MEROPENEM
     Dates: start: 20180717, end: 20180723
  17. INSULIN [Concomitant]
     Active Substance: INSULIN NOS
     Dates: start: 20190823
  18. IVABRADINE [Concomitant]
     Active Substance: IVABRADINE
     Dates: start: 20190919
  19. TELMISARTAN. [Concomitant]
     Active Substance: TELMISARTAN
     Dates: start: 20150101
  20. BISOPROLOL [Concomitant]
     Active Substance: BISOPROLOL
     Dates: start: 20180417
  21. FONDAPARINUX [Concomitant]
     Active Substance: FONDAPARINUX
     Dates: start: 20180601, end: 20180601
  22. GABAPENTIN. [Concomitant]
     Active Substance: GABAPENTIN
     Dates: start: 20180724
  23. CEFTRIAXONE. [Concomitant]
     Active Substance: CEFTRIAXONE
     Dates: start: 20180724, end: 20180806
  24. GLICLAZIDE [Concomitant]
     Active Substance: GLICLAZIDE
     Dates: start: 20180903
  25. TEICOPLANIN [Concomitant]
     Active Substance: TEICOPLANIN
     Dates: start: 20190922, end: 20190926
  26. SODIUM HYALURONATE [Concomitant]
     Active Substance: HYALURONATE SODIUM
     Dates: start: 20170628
  27. GLYCERYL TRINITRATE [Concomitant]
     Active Substance: NITROGLYCERIN
     Dates: start: 20190920
  28. OMEPRAZOLE. [Concomitant]
     Active Substance: OMEPRAZOLE
     Dates: start: 20020801
  29. DENOSUMAB [Concomitant]
     Active Substance: DENOSUMAB
     Dates: start: 20160511
  30. VITAMIN D                          /00107901/ [Concomitant]
     Active Substance: ERGOCALCIFEROL
     Dates: start: 20160524
  31. ATORVASTATIN [Concomitant]
     Active Substance: ATORVASTATIN
     Dates: start: 20170628
  32. PARACETAMOL [Concomitant]
     Active Substance: ACETAMINOPHEN
     Dates: start: 20170628
  33. FUROSEMIDE. [Concomitant]
     Active Substance: FUROSEMIDE
     Dates: start: 20180201, end: 20180301
  34. RAMIPRIL. [Concomitant]
     Active Substance: RAMIPRIL
     Dates: start: 20181223, end: 20190525
  35. DOMPERIDONE [Concomitant]
     Active Substance: DOMPERIDONE
     Dates: start: 20190122
  36. STELARA [Suspect]
     Active Substance: USTEKINUMAB
     Indication: PSORIASIS
     Route: 058
     Dates: start: 20151119, end: 20180425
  37. SIMVASTATIN. [Concomitant]
     Active Substance: SIMVASTATIN
     Dates: start: 20050101
  38. FEXOFENADINE [Concomitant]
     Active Substance: FEXOFENADINE HYDROCHLORIDE
     Dates: start: 20170628
  39. OXYCODONE [Concomitant]
     Active Substance: OXYCODONE
     Dates: start: 20170725
  40. FUROSEMIDE. [Concomitant]
     Active Substance: FUROSEMIDE
     Dates: start: 20190401
  41. DILTIAZEM. [Concomitant]
     Active Substance: DILTIAZEM
     Dates: start: 20180606, end: 20181123
  42. METOPROLOL. [Concomitant]
     Active Substance: METOPROLOL
     Dates: start: 20190920
  43. SIMVASTATIN. [Concomitant]
     Active Substance: SIMVASTATIN
     Dates: start: 20030512
  44. PREDNISOLONE. [Concomitant]
     Active Substance: PREDNISOLONE
     Dates: start: 20090101
  45. PREGABALIN. [Concomitant]
     Active Substance: PREGABALIN
     Dates: start: 20151203
  46. ZOLEDRONIC ACID [Concomitant]
     Active Substance: ZOLEDRONIC ACID
     Dates: start: 20170327
  47. APREMILAST [Concomitant]
     Active Substance: APREMILAST
     Dates: start: 20180926, end: 20191212
  48. ADCAL                              /00056901/ [Concomitant]
     Active Substance: CARBAZOCHROME
     Dates: start: 20190211
  49. CHOLECALCIFEROL [Concomitant]
     Active Substance: CHOLECALCIFEROL
     Dates: start: 20190211
  50. COLCHICINE. [Concomitant]
     Active Substance: COLCHICINE
     Dates: start: 20190912, end: 20190921
  51. METOCLOPRAMIDE. [Concomitant]
     Active Substance: METOCLOPRAMIDE
     Dates: start: 20190122
  52. TEICOPLANIN [Concomitant]
     Active Substance: TEICOPLANIN
     Dates: start: 20190929, end: 20191003

REACTIONS (3)
  - Sepsis [Recovered/Resolved]
  - Pneumonia [Recovered/Resolved]
  - Arthritis bacterial [Recovered/Resolved]

NARRATIVE: CASE EVENT DATE: 20180416
